FAERS Safety Report 5451273-8 (Version None)
Quarter: 2007Q3

REPORT INFORMATION
  Report Type: 
  Country: None (occurrence: None)
  Receive Date: 20070911
  Receipt Date: 20070911
  Transmission Date: 20080115
  Serious: Yes (Hospitalization, Other)
  Sender: FDA-Public Use
  Company Number: None

PATIENT
  Sex: Male
  Weight: 80.2867 kg

DRUGS (1)
  1. CELLCEPT [Suspect]

REACTIONS (2)
  - BLOOD CREATININE INCREASED [None]
  - TRANSPLANT REJECTION [None]
